FAERS Safety Report 16439546 (Version 6)
Quarter: 2023Q2

REPORT INFORMATION
  Report Type: Spontaneous
  Country: US (occurrence: US)
  Receive Date: 20190617
  Receipt Date: 20230502
  Transmission Date: 20230722
  Serious: Yes (Hospitalization, Other)
  Sender: FDA-Public Use
  Company Number: US-PFIZER INC-2019251218

PATIENT
  Age: 69 Year
  Sex: Female
  Weight: 77 kg

DRUGS (8)
  1. TOVIAZ [Suspect]
     Active Substance: FESOTERODINE FUMARATE
     Indication: Bladder disorder
     Dosage: 4 MG, 1X/DAY
     Route: 048
     Dates: start: 2018
  2. TOVIAZ [Suspect]
     Active Substance: FESOTERODINE FUMARATE
     Indication: Pollakiuria
     Dosage: 8 MG, 1X/DAY
     Route: 048
  3. TOVIAZ [Suspect]
     Active Substance: FESOTERODINE FUMARATE
     Dosage: 8 MG, UNK
  4. LOSARTAN [Concomitant]
     Active Substance: LOSARTAN
     Dosage: 50 MG, UNK
     Dates: start: 2017
  5. MONTELUKAST [Concomitant]
     Active Substance: MONTELUKAST SODIUM
     Dosage: UNK
     Dates: start: 201904
  6. ATORVASTATIN [Concomitant]
     Active Substance: ATORVASTATIN
     Dosage: 20 UG, UNK
     Dates: start: 2017
  7. RANITIDINE [Concomitant]
     Active Substance: RANITIDINE
     Dosage: UNK
     Dates: start: 2000
  8. MYRBETRIQ [Concomitant]
     Active Substance: MIRABEGRON

REACTIONS (13)
  - Encephalitis [Recovering/Resolving]
  - Muscle spasms [Recovered/Resolved]
  - Knee arthroplasty [Unknown]
  - Loss of consciousness [Recovered/Resolved]
  - Drug ineffective [Recovering/Resolving]
  - Cerebral disorder [Unknown]
  - Eye disorder [Unknown]
  - Dry mouth [Unknown]
  - Sinus disorder [Not Recovered/Not Resolved]
  - Ear pain [Unknown]
  - Illness [Unknown]
  - Pain [Not Recovered/Not Resolved]
  - Visual impairment [Not Recovered/Not Resolved]

NARRATIVE: CASE EVENT DATE: 20190219
